FAERS Safety Report 6623442-2 (Version None)
Quarter: 2010Q1

REPORT INFORMATION
  Report Type: 
  Country: None (occurrence: None)
  Receive Date: 20100310
  Receipt Date: 20100303
  Transmission Date: 20100710
  Serious: Yes (Other)
  Sender: FDA-Public Use
  Company Number: US-JNJFOC-20100301591

PATIENT
  Sex: Male
  Weight: 62.6 kg

DRUGS (1)
  1. FENTANYL CITRATE [Suspect]
     Indication: PAIN
     Route: 062

REACTIONS (4)
  - HYPERVENTILATION [None]
  - NONSPECIFIC REACTION [None]
  - PRODUCT QUALITY ISSUE [None]
  - SOMNOLENCE [None]
